FAERS Safety Report 4741762-3 (Version None)
Quarter: 2005Q3

REPORT INFORMATION
  Report Type: 
  Country: None (occurrence: None)
  Receive Date: 20050808
  Receipt Date: 20050726
  Transmission Date: 20060218
  Serious: Yes (Other)
  Sender: FDA-Public Use
  Company Number: 2005107950

PATIENT
  Age: 35 Year
  Sex: Male
  Weight: 158.759 kg

DRUGS (2)
  1. CELEBREX [Suspect]
     Indication: ILL-DEFINED DISORDER
     Dosage: ORAL
     Route: 048
     Dates: start: 20010101
  2. CELEBREX [Suspect]
     Indication: LIMB INJURY
     Dosage: ORAL
     Route: 048
     Dates: start: 20010101

REACTIONS (2)
  - DRUG HYPERSENSITIVITY [None]
  - SHOCK [None]
